FAERS Safety Report 25841019 (Version 1)
Quarter: 2025Q3

REPORT INFORMATION
  Report Type: Spontaneous
  Country: US (occurrence: None)
  Receive Date: 20250923
  Receipt Date: 20250923
  Transmission Date: 20251020
  Serious: Yes (Life-Threatening, Hospitalization)
  Sender: FDA-CTU
  Company Number: None

PATIENT
  Age: 74 Year
  Sex: Female

DRUGS (2)
  1. DOFETILIDE [Suspect]
     Active Substance: DOFETILIDE
  2. CITALOPRAM [Concomitant]
     Active Substance: CITALOPRAM

REACTIONS (6)
  - Extradural abscess [None]
  - Electrocardiogram QT prolonged [None]
  - Torsade de pointes [None]
  - Ventricular tachycardia [None]
  - Cardiac arrest [None]
  - Bundle branch block right [None]

NARRATIVE: CASE EVENT DATE: 20250908
